FAERS Safety Report 21308679 (Version 1)
Quarter: 2022Q3

REPORT INFORMATION
  Report Type: Spontaneous
  Country: US (occurrence: None)
  Receive Date: 20220908
  Receipt Date: 20220908
  Transmission Date: 20221026
  Serious: Yes (Hospitalization, Disabling)
  Sender: FDA-Public Use
  Company Number: None

PATIENT
  Age: 32 Year
  Sex: Male
  Weight: 90 kg

DRUGS (5)
  1. FAZACLO [Suspect]
     Active Substance: CLOZAPINE
     Indication: Schizophrenia
     Dosage: FREQUENCY : AT BEDTIME;?
     Route: 048
  2. INVEGA TRINZA [Concomitant]
     Active Substance: PALIPERIDONE PALMITATE
  3. MELATONIN [Concomitant]
     Active Substance: MELATONIN
  4. TYLENOL [Concomitant]
     Active Substance: ACETAMINOPHEN
  5. ALEVE [Concomitant]
     Active Substance: NAPROXEN SODIUM

REACTIONS (12)
  - Pain [None]
  - Dizziness [None]
  - Nausea [None]
  - Fatigue [None]
  - Drug ineffective [None]
  - Injection related reaction [None]
  - Pain in extremity [None]
  - Restless legs syndrome [None]
  - Tachyphrenia [None]
  - Withdrawal syndrome [None]
  - Monoplegia [None]
  - Insomnia [None]

NARRATIVE: CASE EVENT DATE: 20120101
